FAERS Safety Report 6234099-7 (Version None)
Quarter: 2009Q2

REPORT INFORMATION
  Report Type: 
  Country: None (occurrence: None)
  Receive Date: 20090612
  Receipt Date: 20090608
  Transmission Date: 20091009
  Serious: Yes (Hospitalization)
  Sender: FDA-Public Use
  Company Number: 2009SP012573

PATIENT
  Age: 78 Year
  Sex: Female
  Weight: 71 kg

DRUGS (3)
  1. TEMODAL [Suspect]
     Indication: LYMPHOMA
     Dosage: 250 MG;QD;PO
     Route: 048
     Dates: start: 20090518, end: 20090522
  2. METHOTREXATE [Suspect]
     Indication: LYMPHOMA
     Dosage: 5900 MG;QD;IV
     Route: 042
     Dates: start: 20090518, end: 20090518
  3. SOLU-MEDROL [Suspect]
     Indication: LYMPHOMA
     Dosage: 60 MG;QD;IV
     Route: 042
     Dates: start: 20090518, end: 20090521

REACTIONS (1)
  - LEUKOENCEPHALOPATHY [None]
